FAERS Safety Report 25743734 (Version 2)
Quarter: 2025Q4

REPORT INFORMATION
  Report Type: Spontaneous
  Country: US (occurrence: US)
  Receive Date: 20250831
  Receipt Date: 20251013
  Transmission Date: 20260117
  Serious: No
  Sender: CSL BEHRING
  Company Number: US-BEH-2025217334

PATIENT
  Sex: Female

DRUGS (1)
  1. HIZENTRA [Suspect]
     Active Substance: HUMAN IMMUNOGLOBULIN G
     Indication: Immunodeficiency common variable
     Dosage: 8 G, QW
     Route: 058
     Dates: start: 202508

REACTIONS (5)
  - Infusion site swelling [Unknown]
  - Infusion site vesicles [Unknown]
  - Tooth infection [Unknown]
  - Peripheral swelling [Unknown]
  - Endometriosis [Unknown]
